FAERS Safety Report 4747153-3 (Version None)
Quarter: 2005Q3

REPORT INFORMATION
  Report Type: 
  Country: None (occurrence: None)
  Receive Date: 20050815
  Receipt Date: 20050120
  Transmission Date: 20060218
  Serious: Yes (Hospitalization)
  Sender: FDA-Public Use
  Company Number: MEDI-0002784

PATIENT
  Age: 25 Month
  Sex: Female
  Weight: 11.3399 kg

DRUGS (2)
  1. SYNAGIS [Suspect]
     Indication: ANTIVIRAL PROPHYLAXIS
     Dosage: 1.64 ML, 1 IN 30 D, INTRAMUSCULAR;  1 IN 30 D, INTRAMUSCULAR
     Route: 030
     Dates: start: 20041213, end: 20041213
  2. SYNAGIS [Suspect]
     Indication: ANTIVIRAL PROPHYLAXIS
     Dosage: 1.64 ML, 1 IN 30 D, INTRAMUSCULAR;  1 IN 30 D, INTRAMUSCULAR
     Route: 030
     Dates: start: 20050112

REACTIONS (3)
  - ASPHYXIA [None]
  - RESPIRATORY SYNCYTIAL VIRUS INFECTION [None]
  - WHEEZING [None]
